FAERS Safety Report 10284648 (Version 5)
Quarter: 2015Q1

REPORT INFORMATION
  Report Type: Report from Study
  Country: US (occurrence: US)
  Receive Date: 20140708
  Receipt Date: 20150302
  Transmission Date: 20150720
  Serious: Yes (Other)
  Sender: FDA-Public Use
  Company Number: US-SANOFI-AVENTIS-2013SA070603

PATIENT
  Age: 30 Year
  Sex: Female

DRUGS (1)
  1. AUBAGIO [Suspect]
     Active Substance: TERIFLUNOMIDE
     Indication: MULTIPLE SCLEROSIS
     Route: 048
     Dates: start: 20130619, end: 20141215

REACTIONS (5)
  - Limb discomfort [Unknown]
  - Fatigue [Unknown]
  - Drug ineffective [Unknown]
  - Neuralgia [Unknown]
  - Neuromyelitis optica [Unknown]

NARRATIVE: CASE EVENT DATE: 201404
